FAERS Safety Report 13702918 (Version 3)
Quarter: 2018Q1

REPORT INFORMATION
  Report Type: Spontaneous
  Country: CA (occurrence: CA)
  Receive Date: 20170629
  Receipt Date: 20180117
  Transmission Date: 20180508
  Serious: Yes (Other)
  Sender: FDA-Public Use
  Company Number: CA-ASTRAZENECA-2015SF24402

PATIENT
  Age: 58 Year
  Sex: Male

DRUGS (8)
  1. ILAPRAZOLE [Suspect]
     Active Substance: ILAPRAZOLE
     Route: 003
  2. DEXILANT [Suspect]
     Active Substance: DEXLANSOPRAZOLE
     Route: 065
  3. PANTOPRAZOLE [Suspect]
     Active Substance: PANTOPRAZOLE
     Route: 003
  4. LANSOPRAZOLE. [Concomitant]
     Active Substance: LANSOPRAZOLE
     Route: 003
  5. ESOMEPRAZOLE MAGNESIUM. [Suspect]
     Active Substance: ESOMEPRAZOLE MAGNESIUM
     Route: 003
  6. OMEPRAZOLE MAGNESIUM. [Suspect]
     Active Substance: OMEPRAZOLE MAGNESIUM
     Route: 003
  7. RABEPRAZOLE [Suspect]
     Active Substance: RABEPRAZOLE
     Route: 003
  8. DEXILANT [Suspect]
     Active Substance: DEXLANSOPRAZOLE
     Route: 003

REACTIONS (7)
  - Occupational exposure to air contaminants [Unknown]
  - Occupational exposure to product [Unknown]
  - Erythema of eyelid [Unknown]
  - Occupational dermatitis [Unknown]
  - Dermatitis contact [Not Recovered/Not Resolved]
  - Oedema [Unknown]
  - Rash erythematous [Unknown]
